FAERS Safety Report 15280691 (Version 2)
Quarter: 2018Q3

REPORT INFORMATION
  Report Type: Spontaneous
  Country: JP (occurrence: JP)
  Receive Date: 20180815
  Receipt Date: 20180827
  Transmission Date: 20181010
  Serious: Yes (Life-Threatening, Other)
  Sender: FDA-Public Use
  Company Number: JP-JNJFOC-20180620246

PATIENT
  Age: 37 Year
  Sex: Male

DRUGS (58)
  1. PREDONINE [Suspect]
     Active Substance: PREDNISOLONE
     Indication: BEHCET^S SYNDROME
     Route: 048
     Dates: start: 20100114
  2. PREDONINE [Suspect]
     Active Substance: PREDNISOLONE
     Indication: BEHCET^S SYNDROME
     Dosage: DOSE REDUCTION
     Route: 048
     Dates: start: 20100121
  3. PREDONINE [Suspect]
     Active Substance: PREDNISOLONE
     Indication: BEHCET^S SYNDROME
     Dosage: DOSE REDUCTION
     Route: 048
     Dates: start: 20100825
  4. PREDONINE [Suspect]
     Active Substance: PREDNISOLONE
     Indication: BEHCET^S SYNDROME
     Dosage: DOSE REDUCTION
     Route: 048
     Dates: start: 20110223
  5. PREDONINE [Suspect]
     Active Substance: PREDNISOLONE
     Indication: BEHCET^S SYNDROME
     Dosage: DOSE REDUCTION
     Route: 048
     Dates: start: 20120516
  6. PREDONINE [Suspect]
     Active Substance: PREDNISOLONE
     Indication: BEHCET^S SYNDROME
     Dosage: DOSE REDUCTION
     Route: 048
     Dates: start: 20130724
  7. COLCHICINE. [Concomitant]
     Active Substance: COLCHICINE
     Route: 048
     Dates: start: 20100614
  8. ALDACTONE A [Concomitant]
     Active Substance: SPIRONOLACTONE
     Route: 048
  9. REMICADE [Suspect]
     Active Substance: INFLIXIMAB
     Indication: BEHCET^S SYNDROME
     Route: 042
     Dates: start: 20121205, end: 20121219
  10. PREDONINE [Suspect]
     Active Substance: PREDNISOLONE
     Indication: BEHCET^S SYNDROME
     Dosage: DOSE REDUCTION
     Route: 048
     Dates: start: 20100623
  11. PREDONINE [Concomitant]
     Active Substance: PREDNISOLONE
     Route: 065
     Dates: start: 20130327
  12. COLCHICINE. [Concomitant]
     Active Substance: COLCHICINE
     Route: 048
     Dates: start: 20120822, end: 20130305
  13. ARTIST [Concomitant]
     Active Substance: CARVEDILOL
     Route: 048
  14. SIGMART [Concomitant]
     Active Substance: NICORANDIL
     Route: 048
  15. PREDONINE [Suspect]
     Active Substance: PREDNISOLONE
     Indication: BEHCET^S SYNDROME
     Dosage: DOSE REDUCTION
     Route: 048
     Dates: start: 20120315
  16. PREDONINE [Suspect]
     Active Substance: PREDNISOLONE
     Indication: BEHCET^S SYNDROME
     Dosage: DOSE REDUCTION
     Route: 048
  17. PREDONINE [Suspect]
     Active Substance: PREDNISOLONE
     Indication: BEHCET^S SYNDROME
     Dosage: DOSE REDUCTION
     Route: 048
     Dates: start: 20130402
  18. METHYLPREDNISOLONE. [Concomitant]
     Active Substance: METHYLPREDNISOLONE
     Route: 065
     Dates: start: 20091214, end: 20091215
  19. BAKTAR [Concomitant]
     Active Substance: SULFAMETHOXAZOLE\TRIMETHOPRIM
     Route: 048
  20. REMICADE [Suspect]
     Active Substance: INFLIXIMAB
     Indication: BEHCET^S SYNDROME
     Route: 042
     Dates: start: 20130116, end: 20130116
  21. PREDONINE [Suspect]
     Active Substance: PREDNISOLONE
     Indication: BEHCET^S SYNDROME
     Dosage: DOSE REDUCTION
     Route: 048
     Dates: start: 20120223
  22. PREDONINE [Suspect]
     Active Substance: PREDNISOLONE
     Indication: BEHCET^S SYNDROME
     Dosage: DOSE REDUCTION
     Route: 048
     Dates: start: 20120301
  23. PREDONINE [Suspect]
     Active Substance: PREDNISOLONE
     Indication: BEHCET^S SYNDROME
     Dosage: DOSE REDUCTION
     Route: 048
     Dates: start: 20130710
  24. COLCHICINE. [Concomitant]
     Active Substance: COLCHICINE
     Route: 048
     Dates: start: 20100218
  25. COLCHICINE. [Concomitant]
     Active Substance: COLCHICINE
     Route: 048
     Dates: start: 20130818
  26. LASIX [Concomitant]
     Active Substance: FUROSEMIDE
     Route: 048
  27. BAKTAR [Concomitant]
     Active Substance: SULFAMETHOXAZOLE\TRIMETHOPRIM
     Route: 048
     Dates: start: 20130423, end: 20130522
  28. PREDONINE [Suspect]
     Active Substance: PREDNISOLONE
     Indication: BEHCET^S SYNDROME
     Dosage: DOSE REDUCTION
     Route: 048
     Dates: start: 20100128
  29. PREDONINE [Suspect]
     Active Substance: PREDNISOLONE
     Indication: BEHCET^S SYNDROME
     Dosage: DOSE REDUCTION
     Route: 048
     Dates: start: 20100722
  30. PREDONINE [Suspect]
     Active Substance: PREDNISOLONE
     Indication: BEHCET^S SYNDROME
     Dosage: DOSE REDUCTION
     Route: 048
     Dates: start: 20100728
  31. PREDONINE [Suspect]
     Active Substance: PREDNISOLONE
     Indication: BEHCET^S SYNDROME
     Dosage: DOSE REDUCTION
     Route: 048
     Dates: start: 20101020
  32. PREDONINE [Suspect]
     Active Substance: PREDNISOLONE
     Indication: BEHCET^S SYNDROME
     Dosage: DOSE REDUCTION
     Route: 048
     Dates: start: 20120202
  33. PREDONINE [Suspect]
     Active Substance: PREDNISOLONE
     Indication: BEHCET^S SYNDROME
     Dosage: DOSE REDUCTION
     Route: 048
     Dates: start: 20120209
  34. PREDONINE [Suspect]
     Active Substance: PREDNISOLONE
     Indication: BEHCET^S SYNDROME
     Dosage: DOSE REDUCTION
     Route: 048
     Dates: start: 20130503
  35. HALIZON [Concomitant]
     Active Substance: AMPHOTERICIN B
     Route: 065
     Dates: start: 20130423, end: 20130522
  36. COLCHICINE. [Concomitant]
     Active Substance: COLCHICINE
     Route: 048
  37. WARFARIN [Concomitant]
     Active Substance: WARFARIN
     Route: 048
  38. PREDONINE [Suspect]
     Active Substance: PREDNISOLONE
     Indication: BEHCET^S SYNDROME
     Dosage: DOSE REDUCTION
     Route: 048
     Dates: start: 20100304
  39. PREDONINE [Suspect]
     Active Substance: PREDNISOLONE
     Indication: BEHCET^S SYNDROME
     Dosage: DOSE REDUCTION
     Route: 048
     Dates: start: 20100317
  40. PREDONINE [Suspect]
     Active Substance: PREDNISOLONE
     Indication: BEHCET^S SYNDROME
     Dosage: DOSE REDUCTION
     Route: 048
     Dates: start: 20100922
  41. PREDONINE [Suspect]
     Active Substance: PREDNISOLONE
     Indication: BEHCET^S SYNDROME
     Dosage: DOSE REDUCTION
     Route: 048
     Dates: start: 20130418
  42. PREDONINE [Suspect]
     Active Substance: PREDNISOLONE
     Indication: BEHCET^S SYNDROME
     Dosage: DOSE REDUCTION
     Route: 048
     Dates: start: 20130626
  43. CRAVIT [Concomitant]
     Active Substance: LEVOFLOXACIN
     Route: 065
     Dates: start: 20100728
  44. BAYASPIRIN [Concomitant]
     Active Substance: ASPIRIN
     Route: 048
  45. BAKTAR [Concomitant]
     Active Substance: SULFAMETHOXAZOLE\TRIMETHOPRIM
     Route: 048
     Dates: start: 20120822
  46. PREDONINE [Suspect]
     Active Substance: PREDNISOLONE
     Indication: BEHCET^S SYNDROME
     Dosage: DOSE REDUCTION
     Route: 048
     Dates: start: 20100218
  47. PREDONINE [Suspect]
     Active Substance: PREDNISOLONE
     Indication: BEHCET^S SYNDROME
     Dosage: DOSE REDUCTION
     Route: 048
  48. PREDONINE [Suspect]
     Active Substance: PREDNISOLONE
     Indication: BEHCET^S SYNDROME
     Dosage: DOSE REDUCTION
     Route: 048
     Dates: start: 20120216
  49. PREDONINE [Suspect]
     Active Substance: PREDNISOLONE
     Indication: BEHCET^S SYNDROME
     Dosage: DOSE REDUCTION
     Route: 048
     Dates: start: 20120613
  50. PREDONINE [Suspect]
     Active Substance: PREDNISOLONE
     Indication: BEHCET^S SYNDROME
     Dosage: DOSE REDUCTION
     Route: 048
     Dates: start: 20120627
  51. PREDONINE [Suspect]
     Active Substance: PREDNISOLONE
     Indication: BEHCET^S SYNDROME
     Dosage: DOSE REDUCTION
     Route: 048
     Dates: start: 20130426
  52. AMLODIN [Concomitant]
     Active Substance: AMLODIPINE BESYLATE
     Route: 048
  53. PREDONINE [Suspect]
     Active Substance: PREDNISOLONE
     Indication: BEHCET^S SYNDROME
     Route: 048
     Dates: start: 20091221
  54. PREDONINE [Suspect]
     Active Substance: PREDNISOLONE
     Indication: BEHCET^S SYNDROME
     Dosage: DOSE INCREASE
     Route: 048
     Dates: start: 20091231
  55. PREDONINE [Suspect]
     Active Substance: PREDNISOLONE
     Indication: BEHCET^S SYNDROME
     Dosage: DOSE REDUCTION
     Route: 048
     Dates: start: 20120308
  56. PREDONINE [Suspect]
     Active Substance: PREDNISOLONE
     Indication: BEHCET^S SYNDROME
     Dosage: DOSE REDUCTION
     Route: 048
     Dates: start: 20120425
  57. PREDONINE [Suspect]
     Active Substance: PREDNISOLONE
     Indication: BEHCET^S SYNDROME
     Dosage: DOSE REDUCTION
     Route: 048
     Dates: start: 20120919
  58. TAKEPRON [Concomitant]
     Active Substance: LANSOPRAZOLE
     Route: 048

REACTIONS (4)
  - Endocarditis [Recovered/Resolved]
  - Staphylococcal bacteraemia [Recovering/Resolving]
  - Pain [Unknown]
  - Cardiac tamponade [Unknown]

NARRATIVE: CASE EVENT DATE: 20130128
